APPROVED DRUG PRODUCT: LYMPHOSEEK KIT
Active Ingredient: TECHNETIUM TC-99M TILMANOCEPT
Strength: N/A
Dosage Form/Route: INJECTABLE;INJECTION
Application: N202207 | Product #001
Applicant: CARDINAL HEALTH 414 LLC CARDINAL HEALTH NUCLEAR PHARMACY SERVICES 
Approved: Mar 13, 2013 | RLD: Yes | RS: Yes | Type: RX

PATENTS:
Patent 9439985 | Expires: Jan 30, 2029